FAERS Safety Report 22611006 (Version 1)
Quarter: 2023Q2

REPORT INFORMATION
  Report Type: Spontaneous
  Country: CN (occurrence: CN)
  Receive Date: 20230616
  Receipt Date: 20230616
  Transmission Date: 20230721
  Serious: Yes (Life-Threatening, Other)
  Sender: FDA-Public Use
  Company Number: PA2023CN000068

PATIENT
  Age: 66 Year
  Sex: Female

DRUGS (8)
  1. REMIMAZOLAM [Suspect]
     Active Substance: REMIMAZOLAM
     Indication: Sedative therapy
     Dosage: 0.1 MG/KG, QH
     Route: 042
  2. REMIFENTANIL [Suspect]
     Active Substance: REMIFENTANIL
     Indication: Analgesic therapy
     Dosage: 0.05 MICROGRAM/KILOGRAM/MIN
     Route: 042
  3. REMIFENTANIL [Suspect]
     Active Substance: REMIFENTANIL
     Dosage: 0.02 MG
     Route: 042
  4. ARTICAINE\EPINEPHRINE [Concomitant]
     Active Substance: ARTICAINE\EPINEPHRINE
     Indication: Dental local anaesthesia
     Dosage: 1.5 MILLILITER
     Route: 065
  5. PROTAMINE RECOMBINANT HUMAN INSULIN [Concomitant]
     Indication: Product used for unknown indication
     Dosage: UNK
     Route: 065
  6. BORTEZOMIB [Concomitant]
     Active Substance: BORTEZOMIB
     Indication: Product used for unknown indication
     Dosage: UNK
     Route: 065
  7. DEXAMETHASONE ACETATE [Concomitant]
     Active Substance: DEXAMETHASONE ACETATE
     Indication: Product used for unknown indication
     Dosage: UNK
     Route: 065
  8. CYCLOPHOSPHAMIDE [Concomitant]
     Active Substance: CYCLOPHOSPHAMIDE
     Indication: Product used for unknown indication
     Dosage: UNK
     Route: 065

REACTIONS (2)
  - Laryngospasm [Recovered/Resolved]
  - Respiratory depression [Recovered/Resolved]
